FAERS Safety Report 8555109-8 (Version None)
Quarter: 2012Q3

REPORT INFORMATION
  Report Type: 
  Country: None (occurrence: None)
  Receive Date: 20120731
  Receipt Date: 20120726
  Transmission Date: 20120928
  Serious: Yes (Other)
  Sender: FDA-Public Use
  Company Number: US-PFIZER INC-2012182254

PATIENT
  Sex: Male
  Weight: 81.633 kg

DRUGS (5)
  1. XANAX [Suspect]
     Indication: NERVOUS SYSTEM DISORDER
  2. XANAX [Suspect]
     Indication: ANXIETY
     Dosage: 2 MG, 3X/DAY
     Route: 048
     Dates: end: 20120101
  3. PROZAC [Concomitant]
     Indication: DEPRESSION
     Dosage: UNK
  4. ALPRAZOLAM [Suspect]
     Indication: NERVOUS SYSTEM DISORDER
  5. ALPRAZOLAM [Suspect]
     Indication: ANXIETY
     Dosage: 2 MG, 3X/DAY
     Route: 048
     Dates: start: 20120717

REACTIONS (8)
  - DYSPHAGIA [None]
  - DRUG INEFFECTIVE [None]
  - ENDOCRINE DISORDER [None]
  - PRODUCT SIZE ISSUE [None]
  - TABLET PHYSICAL ISSUE [None]
  - CATATONIA [None]
  - PANIC ATTACK [None]
  - DYSGEUSIA [None]
